FAERS Safety Report 22289173 (Version 1)
Quarter: 2023Q2

REPORT INFORMATION
  Report Type: Report from Study
  Country: BR (occurrence: BR)
  Receive Date: 20230505
  Receipt Date: 20230505
  Transmission Date: 20230722
  Serious: Yes (Other)
  Sender: FDA-Public Use
  Company Number: BR-JNJFOC-20230503397

PATIENT
  Age: 53 Year
  Sex: Male

DRUGS (36)
  1. BORTEZOMIB [Suspect]
     Active Substance: BORTEZOMIB
     Indication: Plasma cell myeloma
     Dosage: 2.444 MILLIGRAM
     Route: 058
     Dates: start: 20220323, end: 20220323
  2. BORTEZOMIB [Suspect]
     Active Substance: BORTEZOMIB
     Dosage: 2.444 MILLIGRAM
     Route: 058
     Dates: start: 20220330, end: 20220330
  3. BORTEZOMIB [Suspect]
     Active Substance: BORTEZOMIB
     Dosage: 2.444 MILLIGRAM
     Route: 058
     Dates: start: 20220406, end: 20220406
  4. BORTEZOMIB [Suspect]
     Active Substance: BORTEZOMIB
     Dosage: 2.444 MILLIGRAM
     Route: 058
     Dates: start: 20220413, end: 20220413
  5. BORTEZOMIB [Suspect]
     Active Substance: BORTEZOMIB
     Dosage: 2.444 MILLIGRAM
     Route: 058
     Dates: start: 20220420, end: 20220420
  6. BORTEZOMIB [Suspect]
     Active Substance: BORTEZOMIB
     Dosage: 2.444 MILLIGRAM
     Route: 058
     Dates: start: 20220427, end: 20220427
  7. BORTEZOMIB [Suspect]
     Active Substance: BORTEZOMIB
     Dosage: 2.457 MILLIGRAM
     Route: 058
     Dates: start: 20220504, end: 20220504
  8. BORTEZOMIB [Suspect]
     Active Substance: BORTEZOMIB
     Dosage: 2.457 MILLIGRAM
     Route: 058
     Dates: start: 20220511, end: 20220511
  9. BORTEZOMIB [Suspect]
     Active Substance: BORTEZOMIB
     Dosage: 2.457 MILLIGRAM
     Route: 058
     Dates: start: 20220518, end: 20220518
  10. BORTEZOMIB [Suspect]
     Active Substance: BORTEZOMIB
     Dosage: 2.457 MILLIGRAM
     Route: 058
     Dates: start: 20220525, end: 20220525
  11. BORTEZOMIB [Suspect]
     Active Substance: BORTEZOMIB
     Dosage: 2.457 MILLIGRAM
     Route: 058
     Dates: start: 20220601, end: 20220601
  12. BORTEZOMIB [Suspect]
     Active Substance: BORTEZOMIB
     Dosage: 2.457 MILLIGRAM
     Route: 058
     Dates: start: 20220608, end: 20220608
  13. BORTEZOMIB [Suspect]
     Active Substance: BORTEZOMIB
     Dosage: 2.457 MILLIGRAM
     Route: 058
     Dates: start: 20220615, end: 20220615
  14. BORTEZOMIB [Suspect]
     Active Substance: BORTEZOMIB
     Dosage: 2.457 MILLIGRAM
     Route: 058
     Dates: start: 20220622, end: 20220622
  15. BORTEZOMIB [Suspect]
     Active Substance: BORTEZOMIB
     Dosage: 2.457 MILLIGRAM
     Route: 058
     Dates: start: 20220706, end: 20220706
  16. BORTEZOMIB [Suspect]
     Active Substance: BORTEZOMIB
     Dosage: 2.483 MILLIGRAM
     Route: 058
     Dates: start: 20220713, end: 20220713
  17. BORTEZOMIB [Suspect]
     Active Substance: BORTEZOMIB
     Dosage: 2.47 MILLIGRAM
     Route: 058
     Dates: start: 20220826, end: 20220826
  18. BORTEZOMIB [Suspect]
     Active Substance: BORTEZOMIB
     Dosage: 2.47 MILLIGRAM
     Route: 058
     Dates: start: 20220902, end: 20220902
  19. BORTEZOMIB [Suspect]
     Active Substance: BORTEZOMIB
     Dosage: 2.418 MILLIGRAM
     Route: 058
     Dates: start: 20220909, end: 20220909
  20. BORTEZOMIB [Suspect]
     Active Substance: BORTEZOMIB
     Dosage: 2.418 MILLIGRAM
     Route: 058
     Dates: start: 20220916, end: 20220916
  21. BORTEZOMIB [Suspect]
     Active Substance: BORTEZOMIB
     Dosage: 2.418 MILLIGRAM
     Route: 058
     Dates: start: 20220923, end: 20220923
  22. DARATUMUMAB [Suspect]
     Active Substance: DARATUMUMAB
     Indication: Plasma cell myeloma
     Dosage: 1800 MILLIGRAM
     Route: 065
     Dates: start: 20220323, end: 20220323
  23. DARATUMUMAB [Suspect]
     Active Substance: DARATUMUMAB
     Dosage: 1800 MILLIGRAM
     Route: 065
     Dates: start: 20220330, end: 20220330
  24. DARATUMUMAB [Suspect]
     Active Substance: DARATUMUMAB
     Dosage: 1800 MILLIGRAM
     Route: 065
     Dates: start: 20220406, end: 20220406
  25. DARATUMUMAB [Suspect]
     Active Substance: DARATUMUMAB
     Dosage: 1800 MILLIGRAM
     Route: 065
     Dates: start: 20220413, end: 20220413
  26. DARATUMUMAB [Suspect]
     Active Substance: DARATUMUMAB
     Dosage: 1800 MILLIGRAM
     Route: 065
     Dates: start: 20220420, end: 20220420
  27. DARATUMUMAB [Suspect]
     Active Substance: DARATUMUMAB
     Dosage: 1800 MILLIGRAM
     Route: 065
     Dates: start: 20220427, end: 20220427
  28. DARATUMUMAB [Suspect]
     Active Substance: DARATUMUMAB
     Dosage: 1800 MILLIGRAM
     Route: 065
     Dates: start: 20220504, end: 20220504
  29. DARATUMUMAB [Suspect]
     Active Substance: DARATUMUMAB
     Dosage: 1800 MILLIGRAM
     Route: 065
     Dates: start: 20220511, end: 20220511
  30. DARATUMUMAB [Suspect]
     Active Substance: DARATUMUMAB
     Dosage: 1800 MILLIGRAM
     Route: 065
     Dates: start: 20220518, end: 20220518
  31. DARATUMUMAB [Suspect]
     Active Substance: DARATUMUMAB
     Dosage: 1800 MILLIGRAM
     Route: 065
     Dates: start: 20220601, end: 20220601
  32. DARATUMUMAB [Suspect]
     Active Substance: DARATUMUMAB
     Dosage: 1800 MILLIGRAM
     Route: 065
     Dates: start: 20220615, end: 20220615
  33. DARATUMUMAB [Suspect]
     Active Substance: DARATUMUMAB
     Dosage: 1800 MILLIGRAM
     Route: 065
     Dates: start: 20220706, end: 20220706
  34. DARATUMUMAB [Suspect]
     Active Substance: DARATUMUMAB
     Dosage: 1800 MILLIGRAM
     Route: 065
     Dates: start: 20220826, end: 20220826
  35. DARATUMUMAB [Suspect]
     Active Substance: DARATUMUMAB
     Dosage: 1800 MILLIGRAM
     Route: 065
     Dates: start: 20220909, end: 20220909
  36. DARATUMUMAB [Suspect]
     Active Substance: DARATUMUMAB
     Dosage: 1800 MILLIGRAM
     Route: 065
     Dates: start: 20220923, end: 20220923

REACTIONS (1)
  - Dermatitis bullous [Recovered/Resolved]

NARRATIVE: CASE EVENT DATE: 20220923
